FAERS Safety Report 23931271 (Version 2)
Quarter: 2024Q2

REPORT INFORMATION
  Report Type: Spontaneous
  Country: ES (occurrence: ES)
  Receive Date: 20240603
  Receipt Date: 20240630
  Transmission Date: 20240716
  Serious: Yes (Other)
  Sender: FDA-Public Use
  Company Number: ES-BAUSCHBL-2024BNL027657

PATIENT
  Age: 31 Year
  Sex: Male

DRUGS (4)
  1. TROPICAMIDE [Suspect]
     Active Substance: TROPICAMIDE
     Indication: Libido disorder
     Dosage: DAILY
     Route: 042
  2. METHAMPHETAMINE [Concomitant]
     Active Substance: METHAMPHETAMINE
     Indication: Libido disorder
  3. MIDOMAFETAMINE [Concomitant]
     Active Substance: MIDOMAFETAMINE
     Indication: Libido disorder
  4. OXYBATE [Concomitant]
     Active Substance: OXYBATE
     Indication: Libido disorder

REACTIONS (3)
  - Substance-induced psychotic disorder [Recovered/Resolved]
  - Drug abuse [Unknown]
  - Intentional product use issue [Unknown]
